FAERS Safety Report 14481927 (Version 4)
Quarter: 2019Q2

REPORT INFORMATION
  Report Type: Spontaneous
  Country: US (occurrence: US)
  Receive Date: 20180202
  Receipt Date: 20190424
  Transmission Date: 20190711
  Serious: Yes (Hospitalization, Other)
  Sender: FDA-Public Use
  Company Number: US-PFIZER INC-2016203426

PATIENT
  Age: 72 Year
  Sex: Female
  Weight: 133.79 kg

DRUGS (22)
  1. TRACLEER [Concomitant]
     Active Substance: BOSENTAN
     Indication: PULMONARY HYPERTENSION
     Dosage: 125 MG, 2X/DAY
     Route: 048
     Dates: start: 2015
  2. CLOPIDOGREL [Concomitant]
     Active Substance: CLOPIDOGREL BISULFATE
     Dosage: 75 MG, 1X/DAY
     Dates: start: 2018
  3. HUMULIN NOS [Concomitant]
     Active Substance: INSULIN HUMAN
     Dosage: 40 IU, 3X/DAY
  4. TRACLEER [Concomitant]
     Active Substance: BOSENTAN
     Dosage: 165 MG, 2X/DAY
     Dates: start: 2015
  5. DIGOXIN. [Concomitant]
     Active Substance: DIGOXIN
     Indication: CARDIAC DISORDER
     Dosage: 125 MG, 1X/DAY
  6. VIT B 12 [Concomitant]
     Active Substance: CYANOCOBALAMIN
     Dosage: UNK, 1X/DAY
  7. ZINC CHLORIDE [Concomitant]
     Active Substance: ZINC CHLORIDE
     Indication: ALOPECIA
     Dosage: 50 MG, ALTERNATE DAY
  8. ATORVASTATIN CALCIUM. [Concomitant]
     Active Substance: ATORVASTATIN CALCIUM
     Indication: BLOOD CHOLESTEROL ABNORMAL
     Dosage: 40 MG, 1X/DAY
  9. ELIQUIS [Concomitant]
     Active Substance: APIXABAN
     Dosage: 5 MG, 2X/DAY
     Dates: start: 2017
  10. HUMULIN NOS [Concomitant]
     Active Substance: INSULIN HUMAN
     Dosage: 80 IU, 2X/DAY
  11. VITAMIN D3 [Concomitant]
     Active Substance: CHOLECALCIFEROL
     Dosage: UNK, 1X/DAY (5000)
  12. DIABETIN [Concomitant]
     Dosage: 600 MG, 3X/DAY
     Dates: start: 2015
  13. GABAPENTIN. [Concomitant]
     Active Substance: GABAPENTIN
     Indication: NEURALGIA
     Dosage: UNK
  14. METOPROLOL TARTRATE. [Concomitant]
     Active Substance: METOPROLOL TARTRATE
     Dosage: 25 MG, 2X/DAY
  15. REVATIO [Suspect]
     Active Substance: SILDENAFIL CITRATE
     Indication: PULMONARY ARTERIAL HYPERTENSION
     Dosage: 20 MG, 3 TIMES A DAY
     Route: 048
     Dates: start: 2015
  16. DILTIAZEM HCL [Concomitant]
     Active Substance: DILTIAZEM HYDROCHLORIDE
     Indication: CARDIAC DISORDER
     Dosage: 240 MG, 1X/DAY
  17. ALLOPURINOL. [Concomitant]
     Active Substance: ALLOPURINOL
     Indication: GOUT
     Dosage: 300 MG, 1X/DAY
  18. ALENDRONATE SODIUM HYDRATE [Concomitant]
     Active Substance: ALENDRONATE SODIUM
     Indication: BONE DISORDER
     Dosage: 35 MG PER HOUR
     Dates: start: 2018
  19. ALBUTEROL. [Concomitant]
     Active Substance: ALBUTEROL
     Dosage: 2.5 MG, UNK
  20. LINZESS [Concomitant]
     Active Substance: LINACLOTIDE
     Dosage: 75 MG, 1X/DAY
  21. POTASSIUM CHLORIDE. [Concomitant]
     Active Substance: POTASSIUM CHLORIDE
     Indication: MEDICAL DIET
     Dosage: 20 MEQ/L, 1X/DAY
     Dates: start: 2018
  22. FUROSEMIDE. [Concomitant]
     Active Substance: FUROSEMIDE
     Indication: DIURETIC THERAPY
     Dosage: 60 MG, 2X/DAY

REACTIONS (3)
  - Bronchitis [Recovered/Resolved]
  - Pneumonia [Recovered/Resolved]
  - Pulmonary oedema [Recovered/Resolved]
